FAERS Safety Report 4844070-5 (Version None)
Quarter: 2005Q4

REPORT INFORMATION
  Report Type: 
  Country: None (occurrence: None)
  Receive Date: 20051202
  Receipt Date: 20051123
  Transmission Date: 20060501
  Serious: Yes (Disabling)
  Sender: FDA-Public Use
  Company Number: US-MERCK-0511USA04182

PATIENT
  Age: 70 Year
  Sex: Male
  Weight: 104 kg

DRUGS (2)
  1. VIOXX [Suspect]
     Indication: ARTHRITIS
     Route: 048
     Dates: start: 20001213
  2. VIOXX [Suspect]
     Route: 048

REACTIONS (2)
  - DEPRESSION [None]
  - MYOCARDIAL INFARCTION [None]
